FAERS Safety Report 11429130 (Version 1)
Quarter: 2015Q3

REPORT INFORMATION
  Report Type: Spontaneous
  Country: US (occurrence: US)
  Receive Date: 20150828
  Receipt Date: 20150828
  Transmission Date: 20151125
  Serious: No
  Sender: FDA-Public Use
  Company Number: US-ROCHE-1220494

PATIENT
  Sex: Male

DRUGS (3)
  1. RIBAVIRIN. [Suspect]
     Active Substance: RIBAVIRIN
     Indication: CHRONIC HEPATITIS C
     Dosage: DAILY
     Route: 065
     Dates: start: 20130406
  2. TYLENOL [Concomitant]
     Active Substance: ACETAMINOPHEN
     Indication: INFLUENZA LIKE ILLNESS
  3. PEGASYS [Suspect]
     Active Substance: PEGINTERFERON ALFA-2A
     Indication: CHRONIC HEPATITIS C
     Route: 065
     Dates: start: 20130406

REACTIONS (7)
  - Fatigue [Unknown]
  - Depression [Unknown]
  - Blood glucose increased [Unknown]
  - Nausea [Unknown]
  - Ulcer [Recovering/Resolving]
  - Influenza like illness [Unknown]
  - Headache [Unknown]
